FAERS Safety Report 5645313-0 (Version None)
Quarter: 2008Q1

REPORT INFORMATION
  Report Type: 
  Country: None (occurrence: None)
  Receive Date: 20080229
  Receipt Date: 20080227
  Transmission Date: 20080703
  Serious: Yes (Hospitalization)
  Sender: FDA-Public Use
  Company Number: A0712770A

PATIENT
  Sex: Male

DRUGS (3)
  1. PARNATE [Suspect]
     Indication: DEPRESSION
     Dosage: 60MG PER DAY
     Route: 048
     Dates: start: 20070201
  2. LITHIUM CARBONATE [Concomitant]
     Dosage: 750MG PER DAY
     Dates: start: 20070201
  3. AMITRIPTYLINE HCL [Concomitant]
     Dosage: 25MG PER DAY
     Dates: start: 20070601

REACTIONS (2)
  - DEPRESSION [None]
  - OVERDOSE [None]
